FAERS Safety Report 10241497 (Version 1)
Quarter: 2014Q2

REPORT INFORMATION
  Report Type: Spontaneous
  Country: CN (occurrence: CN)
  Receive Date: 20140617
  Receipt Date: 20140617
  Transmission Date: 20141212
  Serious: Yes (Other)
  Sender: FDA-Public Use
  Company Number: CN-PFIZER INC-2014162303

PATIENT
  Age: 7 Year
  Sex: Male
  Weight: 15 kg

DRUGS (6)
  1. AZITHROMYCIN [Suspect]
     Indication: INFECTION
     Dosage: 150 MG, 1X/DAY
     Route: 048
     Dates: start: 20120407, end: 20120409
  2. AMBROXOL HYDROCHLORIDE [Suspect]
     Indication: SPUTUM ABNORMAL
     Dosage: 30 MG, 1X/DAY
     Route: 041
     Dates: start: 20120405, end: 20120411
  3. TERBUTALINE [Suspect]
     Dosage: 1 ML, 3X/DAY
     Dates: start: 20120405, end: 20120411
  4. ATROVENT [Suspect]
     Dosage: 1 ML, 3X/DAY
     Dates: start: 20120405, end: 20120411
  5. BUDESONIDE [Suspect]
     Dosage: 2 ML, 2X/DAY
     Dates: start: 20120405, end: 20120411
  6. CEFUROXIME SODIUM [Suspect]
     Indication: INFECTION
     Dosage: 0.5 G, 3X/DAY
     Route: 041
     Dates: start: 20120405, end: 20120411

REACTIONS (2)
  - White blood cell count decreased [Recovering/Resolving]
  - Neutrophil count decreased [Recovering/Resolving]
